FAERS Safety Report 5506625-4 (Version None)
Quarter: 2007Q4

REPORT INFORMATION
  Report Type: 
  Country: None (occurrence: None)
  Receive Date: 20071105
  Receipt Date: 20071025
  Transmission Date: 20080405
  Serious: Yes (Congenital Anomaly)
  Sender: FDA-Public Use
  Company Number: FR-ROCHE-506270

PATIENT

DRUGS (1)
  1. CELLCEPT [Suspect]

REACTIONS (8)
  - ANTIPHOSPHOLIPID SYNDROME [None]
  - CAESAREAN SECTION [None]
  - DRUG EXPOSURE DURING PREGNANCY [None]
  - FOETAL DISORDER [None]
  - FOETAL GROWTH RETARDATION [None]
  - PULMONARY HYPERTENSION [None]
  - RESPIRATORY DISTRESS [None]
  - VENTRICULAR SEPTAL DEFECT [None]
